FAERS Safety Report 22827109 (Version 6)
Quarter: 2024Q3

REPORT INFORMATION
  Report Type: Spontaneous
  Country: JP (occurrence: JP)
  Receive Date: 20230816
  Receipt Date: 20240810
  Transmission Date: 20241017
  Serious: Yes (Other)
  Sender: ABBVIE
  Company Number: JP-ABBVIE-5368253

PATIENT
  Age: 30 Year
  Sex: Female

DRUGS (3)
  1. ASENAPINE MALEATE [Suspect]
     Active Substance: ASENAPINE MALEATE
     Indication: Schizophrenia
     Dosage: TABLETS UNFLAVOURED, FORM STRENGTH: 5 MILLIGRAM
     Route: 060
     Dates: start: 20230710, end: 20230710
  2. ASENAPINE MALEATE [Suspect]
     Active Substance: ASENAPINE MALEATE
     Indication: Schizophrenia
     Dosage: TABLETS UNFLAVOURED, FORM STRENGTH: 5 MILLIGRAM
     Route: 060
     Dates: start: 20230711, end: 20230719
  3. ASENAPINE MALEATE [Suspect]
     Active Substance: ASENAPINE MALEATE
     Indication: Schizophrenia
     Dosage: TABLETS UNFLAVOURED, FORM STRENGTH: 5 MILLIGRAM
     Route: 060
     Dates: start: 20230720, end: 20230725

REACTIONS (1)
  - Dermatitis contact [Recovered/Resolved]

NARRATIVE: CASE EVENT DATE: 20230725
